FAERS Safety Report 4860198-8 (Version None)
Quarter: 2005Q4

REPORT INFORMATION
  Report Type: 
  Country: None (occurrence: None)
  Receive Date: 20051219
  Receipt Date: 20051209
  Transmission Date: 20060501
  Serious: Yes (Other)
  Sender: FDA-Public Use
  Company Number: CA-BRISTOL-MYERS SQUIBB COMPANY-13217633

PATIENT
  Age: 72 Year
  Sex: Female

DRUGS (15)
  1. TEQUIN [Suspect]
     Route: 048
  2. AVELOX [Suspect]
     Route: 048
  3. ADALAT [Concomitant]
     Route: 048
  4. ATROVENT [Concomitant]
     Route: 055
  5. COMBIVENT [Concomitant]
     Route: 055
  6. FLOVENT [Concomitant]
     Route: 055
  7. FUROSEMIDE [Concomitant]
     Route: 048
  8. GLICLAZIDE [Concomitant]
     Route: 048
  9. K-DUR 10 [Concomitant]
     Route: 048
  10. LIPITOR [Concomitant]
     Route: 048
  11. TRANSDERMAL NICOTINE [Concomitant]
     Route: 062
  12. PREDNISONE TAB [Concomitant]
     Route: 048
  13. TYLENOL [Concomitant]
     Route: 048
  14. VALSARTAN [Concomitant]
     Route: 048
  15. VENTOLIN [Concomitant]
     Route: 055

REACTIONS (2)
  - HYPERGLYCAEMIA [None]
  - HYPOGLYCAEMIA [None]
